FAERS Safety Report 6451315-7 (Version None)
Quarter: 2009Q4

REPORT INFORMATION
  Report Type: 
  Country: None (occurrence: None)
  Receive Date: 20091123
  Receipt Date: 20091117
  Transmission Date: 20100525
  Serious: Yes (Hospitalization)
  Sender: FDA-Public Use
  Company Number: FR-MERCK-0909FRA00056

PATIENT
  Age: 26 Year
  Sex: Male

DRUGS (3)
  1. PROPECIA [Suspect]
     Indication: ALOPECIA
     Route: 048
     Dates: start: 20090301, end: 20090908
  2. COLCHICINE [Suspect]
     Indication: PERICARDITIS
     Route: 048
     Dates: start: 20090701, end: 20090908
  3. COLCHICINE [Suspect]
     Indication: PROPHYLAXIS
     Route: 048
     Dates: start: 20090701, end: 20090908

REACTIONS (2)
  - PIGMENTATION DISORDER [None]
  - VIRAL PERICARDITIS [None]
